FAERS Safety Report 12116181 (Version 1)
Quarter: 2016Q1

REPORT INFORMATION
  Report Type: Spontaneous
  Country: US (occurrence: US)
  Receive Date: 20160225
  Receipt Date: 20160225
  Transmission Date: 20160526
  Serious: No
  Sender: FDA-Public Use
  Company Number: US-MYLANLABS-2016M1000319

PATIENT
  Age: 42 Year
  Sex: Male

DRUGS (3)
  1. CARVEDILOL TEVA [Suspect]
     Active Substance: CARVEDILOL
     Indication: BLOOD PRESSURE MEASUREMENT
     Dosage: 3.125 MG, BID, PO
     Route: 048
     Dates: start: 201512
  2. GABAPENTIN. [Suspect]
     Active Substance: GABAPENTIN
     Indication: NEUROPATHY PERIPHERAL
     Dosage: 300 MG, TID, PO
     Route: 048
     Dates: start: 2014
  3. METOPROLOL TARTRATE TABLETS USP [Suspect]
     Active Substance: METOPROLOL TARTRATE
     Indication: BLOOD PRESSURE MEASUREMENT
     Dosage: 12.5 MG, BID,PO
     Route: 048
     Dates: start: 20151222, end: 201512

REACTIONS (4)
  - Dysphemia [Not Recovered/Not Resolved]
  - Myocardial infarction [None]
  - Drug interaction [Not Recovered/Not Resolved]
  - Speech disorder [Not Recovered/Not Resolved]

NARRATIVE: CASE EVENT DATE: 20151222
